FAERS Safety Report 8209567-9 (Version None)
Quarter: 2012Q1

REPORT INFORMATION
  Report Type: 
  Country: None (occurrence: None)
  Receive Date: 20120314
  Receipt Date: 20120306
  Transmission Date: 20120608
  Serious: Yes (Hospitalization)
  Sender: FDA-Public Use
  Company Number: PHEH2012US005031

PATIENT
  Sex: Male

DRUGS (32)
  1. MORPHINE [Concomitant]
  2. DOLOPHINE HCL [Concomitant]
     Dosage: UNK
  3. DRISDOL [Concomitant]
  4. FERROUS SULFATE TAB [Concomitant]
  5. ABILIFY [Concomitant]
     Dosage: UNK
  6. MEPHYTON [Concomitant]
  7. CYSTON KYU [Concomitant]
     Dosage: UNK
  8. BENTYL [Concomitant]
  9. TYLENOL [Concomitant]
  10. PROVENTIL [Concomitant]
  11. A/H1N1 INFLUENZA PANDEMIC VACCINE [Concomitant]
  12. CREON [Concomitant]
  13. NORVASC [Concomitant]
  14. ZOLOFT [Concomitant]
  15. INFLUENZA VACCINE [Concomitant]
  16. TOBI [Suspect]
     Indication: CYSTIC FIBROSIS
     Dosage: 300 MG, BID
  17. LEVEMIR [Concomitant]
  18. HUMALOG [Concomitant]
  19. SODIUM CHLORIDE [Concomitant]
  20. REGELAN [Concomitant]
  21. WELLBUTRIN [Concomitant]
  22. BOOSTRIX [Concomitant]
  23. PNEUMOCOCCAL VACCINE [Concomitant]
  24. CENTRUM [Concomitant]
  25. SENNA [Concomitant]
  26. PRILOSEC [Concomitant]
  27. SKELAXIN [Concomitant]
     Dosage: UNK
  28. ASPIRIN [Concomitant]
  29. ZOFRAN [Concomitant]
  30. TOBI [Suspect]
     Dosage: 5 ML, BID
  31. DILAUDID [Concomitant]
  32. PHENERGAN [Concomitant]
     Dosage: UNK

REACTIONS (29)
  - TACHYPNOEA [None]
  - RHINORRHOEA [None]
  - PSEUDOMONAS INFECTION [None]
  - DYSARTHRIA [None]
  - HAEMOPTYSIS [None]
  - RALES [None]
  - INITIAL INSOMNIA [None]
  - COUGH [None]
  - ABDOMINAL PAIN [None]
  - INFECTIVE PULMONARY EXACERBATION OF CYSTIC FIBROSIS [None]
  - SOMNOLENCE [None]
  - HYPOGLYCAEMIA [None]
  - GAIT DISTURBANCE [None]
  - DIZZINESS [None]
  - LUNG DISORDER [None]
  - HAEMOGLOBIN DECREASED [None]
  - DYSPNOEA [None]
  - PRODUCTIVE COUGH [None]
  - ASTHENIA [None]
  - PANIC ATTACK [None]
  - GENERALISED ANXIETY DISORDER [None]
  - DECREASED APPETITE [None]
  - OBSTRUCTIVE AIRWAYS DISORDER [None]
  - HAEMATOCRIT DECREASED [None]
  - FATIGUE [None]
  - RESPIRATORY DISTRESS [None]
  - CHEST PAIN [None]
  - HYPOXIA [None]
  - CONFUSIONAL STATE [None]
